FAERS Safety Report 5472670-0 (Version None)
Quarter: 2007Q4

REPORT INFORMATION
  Report Type: 
  Country: None (occurrence: None)
  Receive Date: 20071001
  Receipt Date: 20060815
  Transmission Date: 20080405
  Serious: No
  Sender: FDA-Public Use
  Company Number: US-ASTRAZENECA-2006UW16217

PATIENT
  Age: 82 Year
  Sex: Female
  Weight: 60.8 kg

DRUGS (4)
  1. ARIMIDEX [Suspect]
     Indication: BREAST CANCER
     Route: 048
  2. NORVASC [Concomitant]
  3. LISINOPRIL [Concomitant]
  4. ATIVAN [Concomitant]

REACTIONS (2)
  - BURNING SENSATION [None]
  - DYSURIA [None]
